FAERS Safety Report 12907877 (Version 1)
Quarter: 2016Q4

REPORT INFORMATION
  Report Type: Spontaneous
  Country: CN (occurrence: CN)
  Receive Date: 20161103
  Receipt Date: 20161103
  Transmission Date: 20170207
  Serious: Yes (Disabling)
  Sender: FDA-Public Use
  Company Number: CN-FRESENIUS KABI-FK201608240

PATIENT
  Age: 79 Year
  Sex: Male

DRUGS (2)
  1. HYDROXYETHYL STARCH 200/0.5 [Suspect]
     Active Substance: HYDROXYETHYL STARCH 200/0.5
     Indication: SUPPLEMENTATION THERAPY
     Route: 041
     Dates: start: 20160812, end: 20160814
  2. VOLUVEN [Suspect]
     Active Substance: HYDROXYETHYL STARCH 130/0.4
     Indication: SUPPLEMENTATION THERAPY
     Route: 041
     Dates: start: 20160812, end: 20160812

REACTIONS (4)
  - Red blood cell count decreased [Recovering/Resolving]
  - Haemoglobin decreased [Recovering/Resolving]
  - Haematocrit decreased [Recovering/Resolving]
  - Procedural haemorrhage [None]

NARRATIVE: CASE EVENT DATE: 20160812
